FAERS Safety Report 4906932-X (Version None)
Quarter: 2006Q1

REPORT INFORMATION
  Report Type: 
  Country: None (occurrence: None)
  Receive Date: 20060207
  Receipt Date: 20060124
  Transmission Date: 20060701
  Serious: Yes (Hospitalization)
  Sender: FDA-Public Use
  Company Number: 2006-137573-NL

PATIENT
  Age: 13 Year
  Sex: Female

DRUGS (1)
  1. MARVELON [Suspect]
     Indication: MENORRHAGIA
     Dosage: DF
     Dates: start: 20050701, end: 20051201

REACTIONS (1)
  - HEPATITIS [None]
